FAERS Safety Report 6336864-4 (Version None)
Quarter: 2009Q3

REPORT INFORMATION
  Report Type: 
  Country: None (occurrence: None)
  Receive Date: 20090901
  Receipt Date: 20090108
  Transmission Date: 20100115
  Serious: Yes (Hospitalization)
  Sender: FDA-Public Use
  Company Number: AU-CELGENEUS-008-C5013-07110927

PATIENT
  Sex: Male
  Weight: 98 kg

DRUGS (4)
  1. CC-5013 [Suspect]
     Indication: MULTIPLE MYELOMA
     Route: 048
     Dates: start: 20071018, end: 20071128
  2. CC-5013 [Suspect]
     Route: 048
     Dates: start: 20071129
  3. DEXAMETHASONE [Suspect]
     Indication: MULTIPLE MYELOMA
     Route: 048
     Dates: start: 20071018, end: 20071106
  4. RED BLOOD CELLS [Concomitant]
     Route: 051
     Dates: start: 20070101, end: 20070101

REACTIONS (10)
  - ANAEMIA [None]
  - COLLAPSE OF LUNG [None]
  - COMPUTERISED TOMOGRAM ABNORMAL [None]
  - DYSPNOEA [None]
  - LETHARGY [None]
  - LISTLESS [None]
  - LUNG CONSOLIDATION [None]
  - MALAISE [None]
  - PALLOR [None]
  - PLEURAL EFFUSION [None]
